FAERS Safety Report 24664921 (Version 1)
Quarter: 2024Q4

REPORT INFORMATION
  Report Type: Spontaneous
  Country: US (occurrence: US)
  Receive Date: 20241126
  Receipt Date: 20241126
  Transmission Date: 20250115
  Serious: Yes (Other)
  Sender: ABBVIE
  Company Number: US-ABBVIE-6013905

PATIENT
  Sex: Female

DRUGS (1)
  1. REFRESH TEARS PF [Suspect]
     Active Substance: CARBOXYMETHYLCELLULOSE SODIUM\GLYCERIN
     Indication: Product used for unknown indication
     Dosage: STRENGTH: 10 ML, CMC 0.5% AND GLYCERIN 0.9% MDPF (MULTI-DOSE PRESERVATIVE?FREE)
     Route: 047

REACTIONS (3)
  - Blindness [Unknown]
  - Cataract [Unknown]
  - Product use complaint [Not Recovered/Not Resolved]
